FAERS Safety Report 8461256-1 (Version None)
Quarter: 2012Q2

REPORT INFORMATION
  Report Type: 
  Country: None (occurrence: None)
  Receive Date: 20120619
  Receipt Date: 20120619
  Transmission Date: 20120825
  Serious: No
  Sender: FDA-Public Use
  Company Number: None

PATIENT
  Sex: Female
  Weight: 63.5036 kg

DRUGS (1)
  1. NIASPAN [Suspect]

REACTIONS (6)
  - FLUSHING [None]
  - HOT FLUSH [None]
  - PRURITUS [None]
  - ERYTHEMA [None]
  - PARAESTHESIA [None]
  - PAIN [None]
